FAERS Safety Report 5253913-5 (Version None)
Quarter: 2007Q1

REPORT INFORMATION
  Report Type: 
  Country: None (occurrence: None)
  Receive Date: 20070228
  Receipt Date: 20070228
  Transmission Date: 20070707
  Serious: Yes (Other)
  Sender: FDA-Public Use
  Company Number: None

PATIENT
  Sex: Male
  Weight: 117.9352 kg

DRUGS (1)
  1. BUDEPRION XL 300MG (TEVA) [Suspect]
     Indication: DEPRESSION
     Dosage: 1 QD PO
     Route: 048
     Dates: start: 20070127, end: 20070207

REACTIONS (1)
  - DEPRESSION [None]
